FAERS Safety Report 9812766 (Version 3)
Quarter: 2014Q1

REPORT INFORMATION
  Report Type: Report from Study
  Country: GB (occurrence: GB)
  Receive Date: 20140113
  Receipt Date: 20140130
  Transmission Date: 20141002
  Serious: Yes (Hospitalization)
  Sender: FDA-Public Use
  Company Number: GB-EISAI INC-E7389-04368-CLI-GB

PATIENT
  Age: 66 Year
  Sex: Female
  Weight: 75 kg

DRUGS (2)
  1. E7389 (BOLD) [Suspect]
     Indication: BREAST CANCER METASTATIC
     Route: 040
     Dates: start: 20120510
  2. CAPECITABINE [Suspect]
     Indication: BREAST CANCER METASTATIC
     Route: 048
     Dates: start: 20120510

REACTIONS (2)
  - Intestinal ischaemia [Recovered/Resolved]
  - Small intestinal obstruction [Recovered/Resolved]
